FAERS Safety Report 5337198-7 (Version None)
Quarter: 2007Q2

REPORT INFORMATION
  Report Type: 
  Country: None (occurrence: None)
  Receive Date: 20070529
  Receipt Date: 20070524
  Transmission Date: 20071010
  Serious: Yes (Disabling)
  Sender: FDA-Public Use
  Company Number: A0642860A

PATIENT
  Age: 35 Year
  Sex: Female

DRUGS (3)
  1. LAMICTAL [Suspect]
     Indication: BIPOLAR DISORDER
     Dosage: 50MG PER DAY
     Route: 048
     Dates: start: 20060331
  2. SONATA [Concomitant]
     Dosage: 10MG AS REQUIRED
     Route: 048
     Dates: start: 20060707
  3. XANAX [Concomitant]
     Dosage: .5MG AS REQUIRED
     Route: 048
     Dates: start: 20061010

REACTIONS (5)
  - GENITAL RASH [None]
  - LICHEN SCLEROSUS [None]
  - RASH [None]
  - VULVITIS [None]
  - VULVOVAGINAL PRURITUS [None]
